FAERS Safety Report 15247392 (Version 6)
Quarter: 2019Q1

REPORT INFORMATION
  Report Type: Report from Study
  Country: US (occurrence: US)
  Receive Date: 20180807
  Receipt Date: 20190220
  Transmission Date: 20190417
  Serious: Yes (Other)
  Sender: FDA-Public Use
  Company Number: PHEH2018US031983

PATIENT
  Sex: Female

DRUGS (1)
  1. EXJADE [Suspect]
     Active Substance: DEFERASIROX
     Indication: PRODUCT USED FOR UNKNOWN INDICATION
     Route: 065

REACTIONS (11)
  - Oxygen consumption [Unknown]
  - Pain [Unknown]
  - Ear disorder [Unknown]
  - Fatigue [Unknown]
  - Red blood cell count decreased [Unknown]
  - Aplastic anaemia [Unknown]
  - Neuropathy peripheral [Unknown]
  - Cognitive disorder [Unknown]
  - Memory impairment [Unknown]
  - Leukaemia [Unknown]
  - Renal disorder [Unknown]
